FAERS Safety Report 5565086-X (Version None)
Quarter: 2007Q4

REPORT INFORMATION
  Report Type: 
  Country: None (occurrence: None)
  Receive Date: 20071212
  Receipt Date: 20071206
  Transmission Date: 20080405
  Serious: Yes (Death, Hospitalization)
  Sender: FDA-Public Use
  Company Number: 163-21880-07111428

PATIENT
  Age: 28 Year
  Sex: Female

DRUGS (10)
  1. REVLIMID [Suspect]
     Indication: HODGKIN'S DISEASE
     Dosage: 25 MG, DAILY, ORAL
     Route: 048
     Dates: start: 20071106, end: 20071101
  2. NEXIUM [Concomitant]
  3. VORICONAZOLE (VORICONAZOLE) [Concomitant]
  4. BACTRIM [Concomitant]
  5. ACYCLOVIR [Concomitant]
  6. FENTANYL [Concomitant]
  7. ZOLOFT [Concomitant]
  8. ZOFRAN [Concomitant]
  9. VICODIN [Concomitant]
  10. AMICAR [Concomitant]

REACTIONS (4)
  - HODGKIN'S DISEASE [None]
  - PNEUMONIA [None]
  - PULMONARY EMBOLISM [None]
  - RESPIRATORY DISTRESS [None]
